FAERS Safety Report 25086988 (Version 1)
Quarter: 2025Q1

REPORT INFORMATION
  Report Type: Spontaneous
  Country: GB (occurrence: GB)
  Receive Date: 20250318
  Receipt Date: 20250318
  Transmission Date: 20250409
  Serious: Yes (Other)
  Sender: TEVA
  Company Number: GB-MHRA-EMIS-7321-254bd616-5de8-4f3d-81f4-31916f379b4f

PATIENT
  Age: 76 Year
  Sex: Male
  Weight: 104 kg

DRUGS (3)
  1. AMLODIPINE [Suspect]
     Active Substance: AMLODIPINE BESYLATE
     Indication: Obesity
     Route: 065
     Dates: start: 20241122
  2. Comirnaty [Concomitant]
     Indication: Product used for unknown indication
     Route: 030
     Dates: start: 20241123, end: 20241123
  3. CANDESARTAN [Concomitant]
     Active Substance: CANDESARTAN
     Indication: Product used for unknown indication
     Dosage: MONITOR BP AND REVIEW WITH DR IN 1 WEEK. DO RENAL BLOODS IN 2-4 WEEKS
     Dates: start: 20250218

REACTIONS (2)
  - Joint swelling [Unknown]
  - Peripheral swelling [Unknown]
